FAERS Safety Report 12448976 (Version 2)
Quarter: 2016Q3

REPORT INFORMATION
  Report Type: Report from Study
  Country: KR (occurrence: KR)
  Receive Date: 20160608
  Receipt Date: 20160719
  Transmission Date: 20161109
  Serious: Yes (Hospitalization)
  Sender: FDA-Public Use
  Company Number: KR-B.I. PHARMACEUTICALS,INC./RIDGEFIELD-2016-BI-34766RK

PATIENT
  Age: 69 Year
  Sex: Female
  Weight: 43.3 kg

DRUGS (3)
  1. N-ACETYL CYSTINE [Concomitant]
     Indication: IDIOPATHIC PULMONARY FIBROSIS
     Route: 065
  2. PREDNISONE. [Concomitant]
     Active Substance: PREDNISONE
     Indication: IDIOPATHIC PULMONARY FIBROSIS
     Route: 065
  3. BIBF 1120 [Suspect]
     Active Substance: NINTEDANIB
     Indication: IDIOPATHIC PULMONARY FIBROSIS
     Dosage: 300 MG
     Route: 048
     Dates: start: 20150923, end: 20160526

REACTIONS (4)
  - Enterocolitis [Recovered/Resolved]
  - Decreased appetite [Recovered/Resolved]
  - Alanine aminotransferase increased [Recovered/Resolved]
  - Chronic gastritis [Not Recovered/Not Resolved]

NARRATIVE: CASE EVENT DATE: 20151201
